FAERS Safety Report 10917682 (Version 2)
Quarter: 2015Q1

REPORT INFORMATION
  Report Type: Spontaneous
  Country: US (occurrence: None)
  Receive Date: 20150311
  Receipt Date: 20150319
  Transmission Date: 20150721
  Serious: Yes (Other)
  Sender: FDA-Public Use
  Company Number: 150062

PATIENT
  Age: 62 Year
  Sex: Male
  Weight: 56.7 kg

DRUGS (4)
  1. ATORVASTATIN [Concomitant]
     Active Substance: ATORVASTATIN
  2. SUPREP BOWEL PREP [Suspect]
     Active Substance: MAGNESIUM SULFATE\POTASSIUM SULFATE\SODIUM SULFATE
     Indication: COLONOSCOPY
     Dosage: 1 X 6 OZ. BOTTLE 1X PO
     Route: 048
     Dates: start: 20150224, end: 20150224
  3. LOSARTAN [Concomitant]
     Active Substance: LOSARTAN
  4. LEVOTHYROXINE [Concomitant]
     Active Substance: LEVOTHYROXINE

REACTIONS (13)
  - Vomiting [None]
  - Tremor [None]
  - Syncope [None]
  - Dizziness [None]
  - Blood sodium decreased [None]
  - Influenza [None]
  - Leukocytosis [None]
  - Dehydration [None]
  - Insomnia [None]
  - Nausea [None]
  - Vision blurred [None]
  - Hyperlipidaemia [None]
  - Blood bilirubin increased [None]

NARRATIVE: CASE EVENT DATE: 20150224
